FAERS Safety Report 16861769 (Version 2)
Quarter: 2019Q4

REPORT INFORMATION
  Report Type: Report from Study
  Country: CO (occurrence: CO)
  Receive Date: 20190927
  Receipt Date: 20191018
  Transmission Date: 20200122
  Serious: Yes (Hospitalization)
  Sender: FDA-Public Use
  Company Number: CO-INCYTE CORPORATION-2019IN009534

PATIENT

DRUGS (1)
  1. JAKAVI [Suspect]
     Active Substance: RUXOLITINIB
     Indication: MYELOFIBROSIS
     Dosage: 20 MG, BID (EVERY 12 HOURS)
     Route: 048
     Dates: start: 201905

REACTIONS (10)
  - Cellulitis [Recovering/Resolving]
  - Red blood cell sedimentation rate increased [Unknown]
  - Skin hypertrophy [Unknown]
  - Staphylococcal abscess [Unknown]
  - Haematocrit decreased [Unknown]
  - Inflammatory marker increased [Unknown]
  - Abscess [Unknown]
  - Fistula [Unknown]
  - Furuncle [Unknown]
  - Platelet count increased [Unknown]

NARRATIVE: CASE EVENT DATE: 201907
